FAERS Safety Report 20850872 (Version 4)
Quarter: 2022Q4

REPORT INFORMATION
  Report Type: Spontaneous
  Country: GB (occurrence: GB)
  Receive Date: 20220519
  Receipt Date: 20221013
  Transmission Date: 20230113
  Serious: Yes (Hospitalization, Other)
  Sender: FDA-Public Use
  Company Number: GB-NOVARTISPH-PHHY2019GB167790

PATIENT
  Age: 69 Year
  Sex: Female

DRUGS (13)
  1. LETROZOLE [Suspect]
     Active Substance: LETROZOLE
     Indication: Breast cancer
     Dosage: 2.5 MG, QD
     Route: 048
     Dates: start: 20150223
  2. ASPIRIN [Concomitant]
     Active Substance: ASPIRIN
     Indication: Chest pain
     Dosage: 75 MG
     Route: 048
     Dates: start: 20210323, end: 20210323
  3. OXYCODONE [Concomitant]
     Active Substance: OXYCODONE
     Indication: Product used for unknown indication
     Dosage: 5 ML
     Route: 048
     Dates: start: 20211209
  4. OMEPRAZOLE [Concomitant]
     Active Substance: OMEPRAZOLE
     Indication: Product used for unknown indication
     Dosage: 20 MG
     Route: 050
     Dates: start: 20210406, end: 20220203
  5. COCODAMOL [Concomitant]
     Active Substance: ACETAMINOPHEN\CODEINE PHOSPHATE
     Indication: Product used for unknown indication
     Dosage: 30 MG, TID
     Route: 048
     Dates: start: 20211209
  6. LANSOPRAZOLE [Concomitant]
     Active Substance: LANSOPRAZOLE
     Indication: Product used for unknown indication
     Dosage: 15 MG, (0.5 DAY)
     Route: 048
     Dates: start: 20180719
  7. GABAPENTIN [Concomitant]
     Active Substance: GABAPENTIN
     Indication: Product used for unknown indication
     Dosage: 600 MG, (0.25 DAY)
     Route: 048
     Dates: start: 20150212
  8. PROCHLORPERAZINE [Concomitant]
     Active Substance: PROCHLORPERAZINE
     Indication: Pulmonary embolism
     Dosage: 3 MG (0.5 DAY)
     Route: 048
     Dates: start: 20180719
  9. DIHYDROCODEINE [Concomitant]
     Active Substance: DIHYDROCODEINE
     Indication: Product used for unknown indication
     Dosage: 30 MG (0.25 DAY)
     Route: 065
     Dates: start: 20210902, end: 20210916
  10. BISOPROLOL [Concomitant]
     Active Substance: BISOPROLOL
     Indication: Product used for unknown indication
     Dosage: 2.5 MG, QD
     Route: 065
     Dates: start: 20210324, end: 20210407
  11. POLYETHYLENE GLYCOLS [Concomitant]
     Active Substance: POLYETHYLENE GLYCOLS
     Indication: Product used for unknown indication
     Dosage: UNK
     Route: 065
     Dates: start: 20220422, end: 20220506
  12. ACETAMINOPHEN [Concomitant]
     Active Substance: ACETAMINOPHEN
     Indication: Product used for unknown indication
     Dosage: 500 MG, QD
     Route: 065
     Dates: start: 20220422, end: 20220506
  13. MORPHINE SULFATE [Concomitant]
     Active Substance: MORPHINE SULFATE
     Indication: Product used for unknown indication
     Dosage: 10 MG, QD
     Route: 065
     Dates: start: 20220422, end: 20220506

REACTIONS (8)
  - Haematochezia [Recovered/Resolved]
  - Myelosuppression [Recovered/Resolved]
  - Neutropenia [Recovered/Resolved]
  - Clavicle fracture [Unknown]
  - Groin pain [Recovering/Resolving]
  - Foot fracture [Recovered/Resolved]
  - Abdominal pain [Recovered/Resolved]
  - Diarrhoea [Recovered/Resolved]

NARRATIVE: CASE EVENT DATE: 20150901
